FAERS Safety Report 5916267-4 (Version None)
Quarter: 2008Q4

REPORT INFORMATION
  Report Type: 
  Country: None (occurrence: None)
  Receive Date: 20081013
  Receipt Date: 20081002
  Transmission Date: 20090506
  Serious: Yes (Hospitalization)
  Sender: FDA-Public Use
  Company Number: PHHY2008DE18333

PATIENT
  Sex: Female

DRUGS (5)
  1. FLUVASTATIN [Suspect]
     Indication: HYPERCHOLESTEROLAEMIA
     Dosage: 80 MG/DAY
     Route: 048
  2. TEMGESIC [Concomitant]
     Indication: ANALGESIA
     Dosage: UNK
  3. TEMGESIC [Concomitant]
     Indication: ARTHRALGIA
  4. NOVALGIN [Concomitant]
     Indication: ANALGESIA
     Dosage: UNK
     Route: 048
  5. NOVALGIN [Concomitant]
     Indication: ARTHRALGIA

REACTIONS (4)
  - ARTHRALGIA [None]
  - JOINT SURGERY [None]
  - MUSCLE SPASMS [None]
  - MYALGIA [None]
